FAERS Safety Report 4819296-7 (Version None)
Quarter: 2005Q4

REPORT INFORMATION
  Report Type: 
  Country: None (occurrence: None)
  Receive Date: 20051103
  Receipt Date: 20051024
  Transmission Date: 20060501
  Serious: Yes (Hospitalization)
  Sender: FDA-Public Use
  Company Number: CH-ROCHE-422424

PATIENT
  Age: 70 Year
  Sex: Female

DRUGS (6)
  1. XENICAL [Suspect]
     Indication: DRUG USE FOR UNKNOWN INDICATION
     Route: 048
     Dates: end: 20050615
  2. MARCOUMAR [Interacting]
     Indication: DRUG USE FOR UNKNOWN INDICATION
     Route: 048
     Dates: end: 20050816
  3. TOREM [Concomitant]
     Route: 048
  4. ALDACTONE [Concomitant]
     Route: 048
  5. CONCOR [Concomitant]
     Route: 048
  6. IMPORTAL [Concomitant]
     Route: 048

REACTIONS (4)
  - ANAEMIA [None]
  - DIZZINESS [None]
  - DRUG INTERACTION [None]
  - GASTRIC ULCER HAEMORRHAGE [None]
